FAERS Safety Report 6728002-0 (Version None)
Quarter: 2010Q2

REPORT INFORMATION
  Report Type: 
  Country: None (occurrence: None)
  Receive Date: 20100517
  Receipt Date: 20100512
  Transmission Date: 20101027
  Serious: Yes (Death, Hospitalization)
  Sender: FDA-Public Use
  Company Number: US-EISAI INC.-E7272-00053-CLI-US

PATIENT
  Sex: Male
  Weight: 111 kg

DRUGS (8)
  1. ONTAK [Suspect]
     Indication: PERIPHERAL T-CELL LYMPHOMA UNSPECIFIED
     Route: 041
     Dates: start: 20100308, end: 20100312
  2. DAPSONE [Concomitant]
     Indication: PROPHYLAXIS
  3. ACYCLOVIR [Concomitant]
     Indication: PROPHYLAXIS
     Route: 048
  4. LOPRESSOR [Concomitant]
     Route: 048
  5. LISINOPRIL [Concomitant]
  6. ASPIRIN [Concomitant]
  7. LORTAB [Concomitant]
  8. ATIVAN [Concomitant]

REACTIONS (16)
  - ACIDOSIS [None]
  - ALANINE AMINOTRANSFERASE INCREASED [None]
  - ANAEMIA [None]
  - BLOOD BILIRUBIN INCREASED [None]
  - BLOOD CREATININE INCREASED [None]
  - BRONCHITIS [None]
  - DISEASE PROGRESSION [None]
  - FATIGUE [None]
  - FEBRILE NEUTROPENIA [None]
  - GASTROINTESTINAL HAEMORRHAGE [None]
  - HYPOTENSION [None]
  - NAUSEA [None]
  - PANCYTOPENIA [None]
  - PYREXIA [None]
  - RENAL FAILURE ACUTE [None]
  - THROMBOCYTOPENIA [None]
